FAERS Safety Report 23817622 (Version 1)
Quarter: 2024Q2

REPORT INFORMATION
  Report Type: Spontaneous
  Country: FR (occurrence: FR)
  Receive Date: 20240505
  Receipt Date: 20240505
  Transmission Date: 20240716
  Serious: Yes (Hospitalization)
  Sender: FDA-Public Use
  Company Number: None

PATIENT
  Age: 89 Year
  Sex: Male
  Weight: 77 kg

DRUGS (4)
  1. RISPERDAL [Suspect]
     Active Substance: RISPERIDONE
     Indication: Wrong patient
     Dosage: 0,25 MG
     Route: 048
     Dates: start: 20240316, end: 20240316
  2. FLECAINIDE [Suspect]
     Active Substance: FLECAINIDE
     Indication: Wrong patient
     Dosage: 100 MG
     Route: 048
     Dates: start: 20240316, end: 20240316
  3. LERCANIDIPINE HYDROCHLORIDE [Suspect]
     Active Substance: LERCANIDIPINE HYDROCHLORIDE
     Indication: Wrong patient
     Dosage: 10 MG
     Route: 048
     Dates: start: 20240316, end: 20240316
  4. CAPTOPRIL [Suspect]
     Active Substance: CAPTOPRIL
     Indication: Wrong patient
     Dosage: 25 MG
     Route: 048
     Dates: start: 20240316, end: 20240316

REACTIONS (2)
  - Hypotension [Recovered/Resolved]
  - Medication error [Recovered/Resolved]

NARRATIVE: CASE EVENT DATE: 20240316
